FAERS Safety Report 5784030-3 (Version None)
Quarter: 2008Q2

REPORT INFORMATION
  Report Type: 
  Country: None (occurrence: None)
  Receive Date: 20080605
  Receipt Date: 20080328
  Transmission Date: 20081010
  Serious: No
  Sender: FDA-Public Use
  Company Number: A0718070A

PATIENT
  Age: 54 Year
  Sex: Female
  Weight: 97 kg

DRUGS (2)
  1. ALLI [Suspect]
  2. GLUCOPHAGE [Concomitant]

REACTIONS (1)
  - CONSTIPATION [None]
